FAERS Safety Report 7414194-7 (Version None)
Quarter: 2011Q2

REPORT INFORMATION
  Report Type: 
  Country: None (occurrence: None)
  Receive Date: 20110411
  Receipt Date: 20110411
  Transmission Date: 20111010
  Serious: Yes (Other)
  Sender: FDA-Public Use
  Company Number: None

PATIENT
  Sex: Female
  Weight: 77.1115 kg

DRUGS (1)
  1. CHANTIX [Suspect]
     Indication: SMOKING CESSATION THERAPY
     Dosage: STANDARD
     Dates: start: 20110201, end: 20110301

REACTIONS (7)
  - SUDDEN ONSET OF SLEEP [None]
  - FEELING ABNORMAL [None]
  - GAIT DISTURBANCE [None]
  - PAIN [None]
  - ABNORMAL DREAMS [None]
  - DYSKINESIA [None]
  - BLOOD PRESSURE INCREASED [None]
